FAERS Safety Report 10051840 (Version 1)
Quarter: 2014Q2

REPORT INFORMATION
  Report Type: Spontaneous
  Country: ES (occurrence: ES)
  Receive Date: 20140402
  Receipt Date: 20140402
  Transmission Date: 20141212
  Serious: Yes (Other)
  Sender: FDA-Public Use
  Company Number: ES-ROCHE-1371264

PATIENT
  Age: 84 Year
  Sex: Female

DRUGS (9)
  1. TAMIFLU [Suspect]
     Indication: INFLUENZA
     Route: 048
     Dates: start: 20140125, end: 20140130
  2. ACTIRA [Interacting]
     Indication: RESPIRATORY TRACT INFECTION
     Dosage: 5 TABLETS
     Route: 048
     Dates: start: 20140120, end: 20140128
  3. SINTROM [Interacting]
     Indication: PRODUCT USED FOR UNKNOWN INDICATION
     Dosage: 20 TABLETS
     Route: 048
     Dates: start: 2006, end: 20140128
  4. LORMETAZEPAM [Concomitant]
     Route: 048
  5. IRBESARTAN [Concomitant]
     Route: 048
  6. OMEPRAZOL [Concomitant]
     Route: 048
  7. EBASTINE [Concomitant]
     Route: 048
  8. EMCONCOR [Concomitant]
     Route: 048
  9. ORFIDAL [Concomitant]
     Route: 048

REACTIONS (3)
  - International normalised ratio increased [Recovered/Resolved]
  - Coagulopathy [Recovered/Resolved]
  - Drug interaction [Unknown]
